FAERS Safety Report 4756390-3 (Version None)
Quarter: 2005Q3

REPORT INFORMATION
  Report Type: 
  Country: None (occurrence: None)
  Receive Date: 20050830
  Receipt Date: 20050613
  Transmission Date: 20060218
  Serious: No
  Sender: FDA-Public Use
  Company Number: US-GLAXOSMITHKLINE-A0562434A

PATIENT
  Age: 24 Year
  Sex: Female

DRUGS (4)
  1. WELLBUTRIN XL [Suspect]
     Indication: DEPRESSION
     Dosage: 150MG PER DAY
     Route: 048
     Dates: start: 20050610
  2. ZYPREXA [Concomitant]
  3. DEPO-PROVERA [Concomitant]
  4. ZITHROMAX [Concomitant]

REACTIONS (8)
  - ABDOMINAL DISTENSION [None]
  - ABDOMINAL PAIN [None]
  - ABDOMINAL RIGIDITY [None]
  - ANXIETY [None]
  - BODY TEMPERATURE DECREASED [None]
  - FATIGUE [None]
  - HYPERAESTHESIA [None]
  - PAIN [None]
